FAERS Safety Report 9405606 (Version 1)
Quarter: 2013Q3

REPORT INFORMATION
  Report Type: Spontaneous
  Country: JP (occurrence: JP)
  Receive Date: 20130717
  Receipt Date: 20130717
  Transmission Date: 20140515
  Serious: Yes (Other)
  Sender: FDA-Public Use
  Company Number: JP-BAYER-2013-086504

PATIENT
  Age: 71 Year
  Sex: Female

DRUGS (1)
  1. STIVARGA [Suspect]
     Indication: COLORECTAL CANCER
     Dosage: 160 MG, QD
     Route: 048
     Dates: start: 20130529, end: 20130607

REACTIONS (4)
  - Decreased appetite [Unknown]
  - Fatigue [Unknown]
  - Palmar-plantar erythrodysaesthesia syndrome [Unknown]
  - Malaise [Unknown]
